FAERS Safety Report 13045343 (Version 1)
Quarter: 2016Q4

REPORT INFORMATION
  Report Type: Spontaneous
  Country: US (occurrence: US)
  Receive Date: 20161219
  Receipt Date: 20161219
  Transmission Date: 20170207
  Serious: No
  Sender: FDA-Public Use
  Company Number: None

PATIENT
  Age: 71 Year
  Sex: Male

DRUGS (1)
  1. IMATINIB MES TAB 400MG [Suspect]
     Active Substance: IMATINIB
     Indication: CARCINOID SYNDROME

REACTIONS (3)
  - Neuropathy peripheral [None]
  - Eye swelling [None]
  - Dyspnoea [None]

NARRATIVE: CASE EVENT DATE: 20161219
